FAERS Safety Report 6326363-8 (Version None)
Quarter: 2009Q3

REPORT INFORMATION
  Report Type: 
  Country: None (occurrence: None)
  Receive Date: 20090821
  Receipt Date: 20090807
  Transmission Date: 20100115
  Serious: Yes (Other)
  Sender: FDA-Public Use
  Company Number: 20090370

PATIENT
  Age: 38 Year
  Sex: Male

DRUGS (5)
  1. DOPAMINE HCL [Suspect]
     Indication: CEREBRAL DISORDER
     Dosage: 5-20 MCG/KG/MIN X 39 INTRAVENOUS
     Route: 042
  2. PHENYLEPHRINE HCL INJECTION, USP (0299025) 10 MG/ML [Suspect]
     Indication: CEREBRAL DISORDER
     Dosage: 0.5-1.75 MCG/KG/MIN X 118 HRS, INTRAVENOUS
     Route: 042
  3. PROPOFOL [Suspect]
     Dosage: INTRAVENOUS
     Route: 042
  4. HYPERTONIC SALINE [Concomitant]
  5. MANNITOL [Concomitant]

REACTIONS (8)
  - BLOOD CREATINE PHOSPHOKINASE INCREASED [None]
  - BLOOD CREATINE PHOSPHOKINASE MB INCREASED [None]
  - BLOOD LACTATE DEHYDROGENASE INCREASED [None]
  - ELECTROCARDIOGRAM ST SEGMENT ELEVATION [None]
  - INTRACRANIAL PRESSURE INCREASED [None]
  - METABOLIC ACIDOSIS [None]
  - TACHYARRHYTHMIA [None]
  - VENTRICULAR TACHYCARDIA [None]
